FAERS Safety Report 6412742-7 (Version None)
Quarter: 2009Q4

REPORT INFORMATION
  Report Type: 
  Country: None (occurrence: None)
  Receive Date: 20091023
  Receipt Date: 20091013
  Transmission Date: 20100525
  Serious: Yes (Hospitalization)
  Sender: FDA-Public Use
  Company Number: AU-ABBOTT-09P-008-0602492-00

PATIENT
  Age: 62 Year
  Sex: Female
  Weight: 76 kg

DRUGS (2)
  1. REDUCTIL 10MG [Suspect]
     Indication: WEIGHT DECREASED
     Dates: start: 20090914
  2. CITALOPRAM HYDROBROMIDE [Suspect]
     Indication: DEPRESSION
     Dosage: 20 (NO MENTION OF UNIT FOR DOSE)

REACTIONS (2)
  - DEPRESSION [None]
  - INTENTIONAL OVERDOSE [None]
